FAERS Safety Report 14957882 (Version 1)
Quarter: 2018Q2

REPORT INFORMATION
  Report Type: Spontaneous
  Country: US (occurrence: US)
  Receive Date: 20180509
  Receipt Date: 20180509
  Transmission Date: 20180711
  Serious: Yes (Other)
  Sender: FDA-Public Use
  Company Number: None

PATIENT
  Age: 71 Year
  Sex: Female

DRUGS (2)
  1. PROLIXIN DECANOATE [Suspect]
     Active Substance: FLUPHENAZINE DECANOATE
  2. HALDOL [Suspect]
     Active Substance: HALOPERIDOL

REACTIONS (8)
  - Breast pain [None]
  - Pruritus [None]
  - Nausea [None]
  - Chromaturia [None]
  - Rash [None]
  - Bladder disorder [None]
  - Depression [None]
  - Constipation [None]
